FAERS Safety Report 8155565-3 (Version None)
Quarter: 2012Q1

REPORT INFORMATION
  Report Type: 
  Country: None (occurrence: None)
  Receive Date: 20120222
  Receipt Date: 20120215
  Transmission Date: 20120608
  Serious: Yes (Other)
  Sender: FDA-Public Use
  Company Number: JP-VERTEX PHARMACEUTICALS INC.-AE-2012-002370

PATIENT
  Age: 63 Year
  Sex: Male

DRUGS (3)
  1. PEGINTFERON ALFA-2B [Concomitant]
     Route: 058
     Dates: start: 20120210
  2. REBETOL [Concomitant]
     Route: 048
     Dates: start: 20120210, end: 20120214
  3. TELAVIC (TELAPREVIR) [Suspect]
     Route: 048
     Dates: start: 20120210, end: 20120214

REACTIONS (2)
  - BLOOD CREATININE INCREASED [None]
  - DECREASED APPETITE [None]
